FAERS Safety Report 20567724 (Version 1)
Quarter: 2022Q1

REPORT INFORMATION
  Report Type: Spontaneous
  Country: FR (occurrence: FR)
  Receive Date: 20220308
  Receipt Date: 20220308
  Transmission Date: 20220423
  Serious: Yes (Other)
  Sender: FDA-Public Use
  Company Number: FR-SEPTODONT-2022006775

PATIENT
  Age: 5 Decade
  Sex: Female

DRUGS (3)
  1. ARTICAINE HYDROCHLORIDE\EPINEPHRINE HYDROCHLORIDE [Suspect]
     Active Substance: ARTICAINE HYDROCHLORIDE\EPINEPHRINE HYDROCHLORIDE
     Dosage: 1 CARTRIDGE
     Route: 004
     Dates: start: 202111, end: 202111
  2. DEVICE [Suspect]
     Active Substance: DEVICE
     Route: 004
     Dates: start: 202111, end: 202111
  3. DENTAPEN [Concomitant]
     Dates: start: 202111, end: 202111

REACTIONS (4)
  - Injection site necrosis [Recovered/Resolved]
  - Injection site inflammation [Recovered/Resolved]
  - Injection site pain [Recovering/Resolving]
  - Gingival recession [Unknown]
